FAERS Safety Report 21264811 (Version 1)
Quarter: 2022Q3

REPORT INFORMATION
  Report Type: Spontaneous
  Country: US (occurrence: None)
  Receive Date: 20220828
  Receipt Date: 20220828
  Transmission Date: 20221027
  Serious: Yes (Hospitalization)
  Sender: FDA-Public Use
  Company Number: None

PATIENT
  Age: 70 Year
  Sex: Male

DRUGS (14)
  1. IMATINIB MESYLATE [Suspect]
     Active Substance: IMATINIB MESYLATE
     Indication: Chronic myeloid leukaemia
  2. BUMETANIDE TAB [Concomitant]
  3. BUPROPION TAB [Concomitant]
  4. CENTRUM TAB SILVER [Concomitant]
  5. COLCRYST TAB [Concomitant]
  6. FOLIC ACID TAB [Concomitant]
  7. GABAPENTIN [Concomitant]
     Active Substance: GABAPENTIN
  8. LEVOTHYROIXIN TAB [Concomitant]
  9. LEVOTHYROXINE [Concomitant]
     Active Substance: LEVOTHYROXINE
  10. OSCAL [Concomitant]
     Active Substance: CALCIUM CARBONATE
  11. POT CITRA ER [Concomitant]
  12. POTASSIUM POW CITRATE [Concomitant]
  13. PROBENECID [Concomitant]
     Active Substance: PROBENECID
  14. SIMVASTATIN [Concomitant]
     Active Substance: SIMVASTATIN

REACTIONS (2)
  - Feeling hot [None]
  - COVID-19 [None]

NARRATIVE: CASE EVENT DATE: 20220724
